FAERS Safety Report 4956359-X (Version None)
Quarter: 2006Q1

REPORT INFORMATION
  Report Type: 
  Country: None (occurrence: None)
  Receive Date: 20060323
  Receipt Date: 20060310
  Transmission Date: 20060701
  Serious: Yes (Death)
  Sender: FDA-Public Use
  Company Number: 2005061630

PATIENT
  Age: 73 Year
  Sex: Male

DRUGS (6)
  1. DOXORUBICIN HCL [Suspect]
     Indication: HODGKIN'S DISEASE
     Dosage: (CYCLIC, DAY 1), INTRAVENOUS
     Route: 042
     Dates: start: 20041206, end: 20041206
  2. BLEOMYCIN [Suspect]
     Indication: HODGKIN'S DISEASE
     Dosage: (CYCLIC, DAY 7), INTRAVENOUS
     Route: 042
     Dates: start: 20041213, end: 20041213
  3. CYCLOPHOSPHAMIDE [Suspect]
     Indication: HODGKIN'S DISEASE
     Dosage: (CYCLIC, DAY 1), INTRAVENOUS
     Route: 042
     Dates: start: 20041206, end: 20041206
  4. ETOPOSIDE [Suspect]
     Indication: HODGKIN'S DISEASE
     Dosage: (CYCLIC, DAY 1), INTRAVENOUS
     Route: 042
     Dates: start: 20041206, end: 20041206
  5. NATULAN (PROCARBAZINE HYDROCHLORIDE) [Suspect]
     Indication: HODGKIN'S DISEASE
     Dosage: (CYCLIC, DAY 1 TO 7), INTRAVENOUS
     Route: 042
     Dates: start: 20041206, end: 20041213
  6. LEUKINE [Suspect]
     Indication: ILL-DEFINED DISORDER
     Dosage: SUBCUTANEOUS
     Route: 058
     Dates: start: 20041221, end: 20041223

REACTIONS (14)
  - ALLERGIC RESPIRATORY DISEASE [None]
  - CYTOMEGALOVIRUS PROCTOCOLITIS [None]
  - EPSTEIN-BARR VIRUS INFECTION [None]
  - GENERAL PHYSICAL HEALTH DETERIORATION [None]
  - HODGKIN'S DISEASE [None]
  - INTERSTITIAL LUNG DISEASE [None]
  - NEUTROPENIA [None]
  - PNEUMOCYSTIS JIROVECI INFECTION [None]
  - PNEUMOCYSTIS JIROVECI PNEUMONIA [None]
  - PNEUMONIA CYTOMEGALOVIRAL [None]
  - PSITTACOSIS [None]
  - PULMONARY FIBROSIS [None]
  - SEPSIS [None]
  - THROMBOCYTOPENIA [None]
